FAERS Safety Report 4288467-3 (Version None)
Quarter: 2004Q1

REPORT INFORMATION
  Report Type: 
  Country: None (occurrence: None)
  Receive Date: 20040205
  Receipt Date: 20040126
  Transmission Date: 20041129
  Serious: Yes (Hospitalization)
  Sender: FDA-Public Use
  Company Number: 04P-163-0248607-00

PATIENT
  Age: 81 Year
  Sex: Female
  Weight: 72.5755 kg

DRUGS (3)
  1. SYNTHROID [Suspect]
     Indication: HYPOTHYROIDISM
     Dosage: 88 MCG, 1 IN 1 D, PER ORAL
     Route: 048
     Dates: start: 19970101
  2. PARACETAMOL [Concomitant]
  3. ESOMEPRZOLE [Concomitant]

REACTIONS (7)
  - DIZZINESS [None]
  - FALL [None]
  - HIP FRACTURE [None]
  - INSOMNIA [None]
  - NAUSEA [None]
  - POSTOPERATIVE THROMBOSIS [None]
  - VISION BLURRED [None]
